FAERS Safety Report 15201815 (Version 1)
Quarter: 2018Q3

REPORT INFORMATION
  Report Type: Report from Study
  Country: US (occurrence: US)
  Receive Date: 20180726
  Receipt Date: 20180726
  Transmission Date: 20181010
  Serious: Yes (Hospitalization)
  Sender: FDA-Public Use
  Company Number: US-ROCHE-2158015

PATIENT
  Age: 55 Year
  Sex: Male
  Weight: 82.6 kg

DRUGS (2)
  1. ATEZOLIZUMAB. [Suspect]
     Active Substance: ATEZOLIZUMAB
     Indication: CHOLANGIOCARCINOMA
     Dosage: ATEZOLIZUMAB IV OVER 30?60 MINUTES ON DAYS 1 AND 15 AS OER PROTOCOL LAST DOSE 27/JUN/2018
     Route: 042
     Dates: start: 20180627, end: 20180627
  2. COBIMETINIB. [Suspect]
     Active Substance: COBIMETINIB
     Indication: CHOLANGIOCARCINOMA
     Dosage: COBIMETINIB ORALLY (PO) ONCE DAILY (QD) ON DAYS 1?21. COURSES REPEAT EVERY 28 DAYS IN THE ABSENCE OF
     Route: 048
     Dates: start: 20180627, end: 20180710

REACTIONS (3)
  - Confusional state [Unknown]
  - Syncope [Recovered/Resolved]
  - Hypotension [Unknown]

NARRATIVE: CASE EVENT DATE: 20180711
